FAERS Safety Report 11323063 (Version 1)
Quarter: 2015Q3

REPORT INFORMATION
  Report Type: Spontaneous
  Country: DK (occurrence: DK)
  Receive Date: 20150730
  Receipt Date: 20150730
  Transmission Date: 20151125
  Serious: Yes (Other)
  Sender: FDA-Public Use
  Company Number: DK-ROCHE-1614448

PATIENT
  Age: 80 Year
  Sex: Female

DRUGS (8)
  1. ERIVEDGE [Suspect]
     Active Substance: VISMODEGIB
     Indication: BASAL CELL CARCINOMA
     Dosage: STYRKE: 150 MG.
     Route: 048
     Dates: start: 20150428, end: 20150610
  2. HYDROCHLOROTHIAZIDE/LOSARTAN [Concomitant]
     Active Substance: HYDROCHLOROTHIAZIDE\LOSARTAN
     Indication: HYPERTENSION
     Dosage: DRUG REPORTED AS LOSARTANKALIUM/HYDROCHLORTHIAZID ^KRKA^
     Route: 065
  3. ULTRACORTENOL [Concomitant]
     Indication: EYE DISORDER
     Route: 065
  4. DIPROLEN [Concomitant]
     Indication: PSORIASIS
     Route: 065
  5. PAMOL [Concomitant]
     Active Substance: ACETAMINOPHEN
     Indication: PRODUCT USED FOR UNKNOWN INDICATION
     Route: 065
  6. TRAMADOL HYDROCHLORIDE. [Concomitant]
     Active Substance: TRAMADOL HYDROCHLORIDE
     Indication: PAIN
     Dosage: DRUG REPORTED AS TRAMADOL RETARD ^ACTAVIS^
     Route: 065
  7. NASONEX [Concomitant]
     Active Substance: MOMETASONE FUROATE
     Indication: RHINITIS
     Route: 065
  8. KLORAMFENIKOL [Concomitant]
     Indication: CONJUNCTIVITIS
     Dosage: DRUG REPORTED AS KLORAMFENIKOL ^DAK^
     Route: 065

REACTIONS (5)
  - Blood alkaline phosphatase increased [Recovered/Resolved]
  - Hepatic enzyme increased [Recovered/Resolved]
  - Hepatocellular injury [Recovered/Resolved]
  - Alanine aminotransferase increased [Recovered/Resolved]
  - Aspartate aminotransferase increased [Recovered/Resolved]

NARRATIVE: CASE EVENT DATE: 20150610
